FAERS Safety Report 24663996 (Version 1)
Quarter: 2024Q4

REPORT INFORMATION
  Report Type: Spontaneous
  Country: JP (occurrence: JP)
  Receive Date: 20241126
  Receipt Date: 20241126
  Transmission Date: 20250115
  Serious: Yes (Other)
  Sender: RANBAXY
  Company Number: JP-SUN PHARMACEUTICAL INDUSTRIES LTD-2024R1-480609

PATIENT
  Age: 32 Year
  Sex: Female

DRUGS (3)
  1. GUANFACINE [Suspect]
     Active Substance: GUANFACINE
     Indication: COVID-19
     Dosage: 2 MILLIGRAM, DAILY
     Route: 065
  2. GUANFACINE [Suspect]
     Active Substance: GUANFACINE
     Dosage: 4 MILLIGRAM, DAILY
     Route: 065
  3. GUANFACINE [Suspect]
     Active Substance: GUANFACINE
     Dosage: 2 MILLIGRAM, DAILY
     Route: 065

REACTIONS (2)
  - Condition aggravated [Unknown]
  - Off label use [Unknown]
